FAERS Safety Report 14898512 (Version 1)
Quarter: 2018Q2

REPORT INFORMATION
  Report Type: Spontaneous
  Country: US (occurrence: US)
  Receive Date: 20180515
  Receipt Date: 20180515
  Transmission Date: 20180711
  Serious: No
  Sender: FDA-Public Use
  Company Number: US-ALLERGAN-1754907US

PATIENT
  Sex: Male

DRUGS (1)
  1. CONDYLOX [Suspect]
     Active Substance: PODOFILOX
     Indication: ANOGENITAL WARTS
     Route: 065

REACTIONS (2)
  - Drug ineffective [Unknown]
  - Product use complaint [Unknown]
